FAERS Safety Report 6124079-4 (Version None)
Quarter: 2009Q1

REPORT INFORMATION
  Report Type: 
  Country: None (occurrence: None)
  Receive Date: 20090318
  Receipt Date: 20090318
  Transmission Date: 20090719
  Serious: No
  Sender: FDA-Public Use
  Company Number: None

PATIENT
  Age: 61 Year
  Sex: Female
  Weight: 68.0396 kg

DRUGS (1)
  1. RECLAST [Suspect]
     Indication: OSTEOPOROSIS
     Dates: start: 20090129, end: 20090129

REACTIONS (5)
  - DEPRESSION [None]
  - DIPLOPIA [None]
  - INFLUENZA LIKE ILLNESS [None]
  - PAIN [None]
  - VISION BLURRED [None]
